FAERS Safety Report 9717089 (Version 2)
Quarter: 2013Q4

REPORT INFORMATION
  Report Type: Spontaneous
  Country: US (occurrence: None)
  Receive Date: 20131125
  Receipt Date: 20131204
  Transmission Date: 20140711
  Serious: Yes (Hospitalization, Disabling)
  Sender: FDA-Public Use
  Company Number: UTC-039819

PATIENT
  Age: 49 Year
  Sex: Male

DRUGS (12)
  1. REMODULIN [Suspect]
     Indication: COR PULMONALE CHRONIC
     Dosage: 114.48 UG/KG (0.0795 UG/KG, 1 IN 1 MIN) , SUBCUTANEOUS
     Route: 058
     Dates: start: 20120524
  2. LASIX (FUROSEMIDE) (UNKNOWN) [Concomitant]
  3. TRACLEER (BOSENTAN) (UNKNOWN) [Concomitant]
  4. PREDNISONE (UNKNOWN) [Concomitant]
  5. SPIRIVA (TIOTROPIUM BROMIDE) (UNKNOWN) [Concomitant]
  6. ALBUTEROL (SALBUTEROL) (UNKNOWN) [Concomitant]
  7. METOLAZONE (UNKNOWN) [Concomitant]
  8. LANSOPRAZOLE (UNKNOWN) [Concomitant]
  9. POTASSIUM (UNKNOWN) [Concomitant]
  10. DILTANTIN (PHENYTOIN) (UNKNOWN) [Concomitant]
  11. PHENOBARBITAL (UNKNOWN) [Concomitant]
  12. METFORMIN (UNKNOWN) [Concomitant]

REACTIONS (6)
  - Hypotension [None]
  - Respiratory failure [None]
  - Syncope [None]
  - Overdose [None]
  - Device issue [None]
  - Incorrect dose administered by device [None]
